FAERS Safety Report 8832349 (Version 1)
Quarter: 2012Q4

REPORT INFORMATION
  Report Type: 
  Country: US (occurrence: US)
  Receive Date: 20121009
  Receipt Date: 20121009
  Transmission Date: 20130627
  Serious: Yes (Life-Threatening)
  Sender: FDA-Public Use
  Company Number: CHPA2012US015993

PATIENT

DRUGS (1)
  1. EXCEDRIN ES BACK + BODY [Suspect]
     Dosage: Unk, Unk
     Route: 048

REACTIONS (1)
  - Pain [Unknown]
